FAERS Safety Report 10466052 (Version 2)
Quarter: 2014Q3

REPORT INFORMATION
  Report Type: Report from Study
  Country: US (occurrence: US)
  Receive Date: 20140922
  Receipt Date: 20140922
  Transmission Date: 20150326
  Serious: No
  Sender: FDA-Public Use
  Company Number: US-009507513-1408USA012410

PATIENT
  Age: 74 Year
  Sex: Male

DRUGS (7)
  1. PRINIVIL [Concomitant]
     Active Substance: LISINOPRIL
     Dosage: TOTAL DAILY DOSE 2.5 MG, QD
     Route: 048
     Dates: start: 20140228
  2. PEMBROLIZUMAB. [Suspect]
     Active Substance: PEMBROLIZUMAB
     Indication: METASTATIC MALIGNANT MELANOMA
     Dosage: 2 MG/KG, Q3W
     Route: 042
     Dates: start: 20140729, end: 20140819
  3. SOLU-CORTEF [Concomitant]
     Active Substance: HYDROCORTISONE SODIUM SUCCINATE
     Dosage: PRN
     Route: 030
     Dates: start: 20140519
  4. AMBIEN [Concomitant]
     Active Substance: ZOLPIDEM TARTRATE
     Dosage: TOTAL DAILY DOSE 5 MG, HS
     Route: 048
     Dates: start: 20140421
  5. HYDROCORTONE [Concomitant]
     Active Substance: HYDROCORTISONE
     Dosage: 25 MG, QAM
     Route: 048
     Dates: start: 20140417
  6. METOPROLOL [Concomitant]
     Active Substance: METOPROLOL
     Dosage: TOTAL DAILY DOSE 50 MG, QD
     Route: 048
     Dates: start: 20131126
  7. ATORVASTATIN [Concomitant]
     Active Substance: ATORVASTATIN
     Dosage: TOTAL DAILY DOSE 20 MG, QHS
     Route: 048
     Dates: start: 20131126

REACTIONS (3)
  - Rash maculo-papular [Unknown]
  - Alanine aminotransferase increased [Unknown]
  - Aspartate aminotransferase increased [Unknown]

NARRATIVE: CASE EVENT DATE: 20140814
